FAERS Safety Report 14947690 (Version 3)
Quarter: 2019Q1

REPORT INFORMATION
  Report Type: Spontaneous
  Country: US (occurrence: US)
  Receive Date: 20180529
  Receipt Date: 20190215
  Transmission Date: 20190417
  Serious: Yes (Death, Hospitalization)
  Sender: FDA-Public Use
  Company Number: US-VIFOR (INTERNATIONAL) INC.-VIT-2018-04935

PATIENT
  Age: 70 Year
  Sex: Male

DRUGS (17)
  1. BUMETANIDE. [Concomitant]
     Active Substance: BUMETANIDE
  2. PHOSLO [Concomitant]
     Active Substance: CALCIUM ACETATE
  3. FLOMAX [Concomitant]
     Active Substance: TAMSULOSIN HYDROCHLORIDE
  4. NITROGLYCERIN. [Concomitant]
     Active Substance: NITROGLYCERIN
  5. OMEPRAZOLE. [Concomitant]
     Active Substance: OMEPRAZOLE
  6. AMIODARONE [Concomitant]
     Active Substance: AMIODARONE
  7. ASPIRIN. [Concomitant]
     Active Substance: ASPIRIN
  8. PROVENTIL [Concomitant]
     Active Substance: ALBUTEROL
  9. VELTASSA [Suspect]
     Active Substance: PATIROMER
     Indication: HYPERKALAEMIA
     Route: 048
     Dates: start: 20180322
  10. HUMALOG [Concomitant]
     Active Substance: INSULIN LISPRO
  11. HYDRALAZINE [Concomitant]
     Active Substance: HYDRALAZINE HYDROCHLORIDE
  12. CARVEDILOL. [Concomitant]
     Active Substance: CARVEDILOL
  13. CELEXA [Concomitant]
     Active Substance: CITALOPRAM HYDROBROMIDE
  14. ARANESP [Concomitant]
     Active Substance: DARBEPOETIN ALFA
  15. PREDNISONE. [Concomitant]
     Active Substance: PREDNISONE
  16. IMDUR [Concomitant]
     Active Substance: ISOSORBIDE MONONITRATE
  17. LISINOPRIL. [Concomitant]
     Active Substance: LISINOPRIL

REACTIONS (3)
  - Foot amputation [Unknown]
  - Death [Fatal]
  - Finger amputation [Unknown]

NARRATIVE: CASE EVENT DATE: 201804
